FAERS Safety Report 9174243 (Version 1)
Quarter: 2013Q1

REPORT INFORMATION
  Report Type: Spontaneous
  Country: US (occurrence: None)
  Receive Date: 20130318
  Receipt Date: 20130318
  Transmission Date: 20140127
  Serious: No
  Sender: FDA-Public Use
  Company Number: None

PATIENT
  Sex: Female
  Weight: 75.3 kg

DRUGS (2)
  1. MARCAINE [Suspect]
     Indication: PROCEDURAL PAIN
     Dosage: PUMPED IN SHOULDERS
     Dates: start: 20130123, end: 20130125
  2. TRAMADOL [Suspect]
     Indication: PROCEDURAL PAIN
     Dosage: 50 MG 1-2 AS NEEDED MOUTH
     Route: 048

REACTIONS (1)
  - Fall [None]
